FAERS Safety Report 8396185-5 (Version None)
Quarter: 2012Q2

REPORT INFORMATION
  Report Type: 
  Country: None (occurrence: None)
  Receive Date: 20120530
  Receipt Date: 20120526
  Transmission Date: 20120825
  Serious: Yes (Hospitalization)
  Sender: FDA-Public Use
  Company Number: ES-GLAXOSMITHKLINE-B0794684A

PATIENT
  Sex: Male
  Weight: 87.8 kg

DRUGS (19)
  1. RETIGABINE [Suspect]
     Indication: PARTIAL SEIZURES
     Dosage: 200MG THREE TIMES PER DAY
     Route: 048
     Dates: start: 20060731
  2. ACETAMINOPHEN [Concomitant]
     Dates: start: 20120417
  3. SUCRALFATE [Concomitant]
     Indication: PROPHYLAXIS
     Dates: start: 20120407, end: 20120414
  4. LEVOTHYROXINE SODIUM [Concomitant]
     Dates: start: 20120430
  5. LORAZEPAM [Concomitant]
     Indication: INSOMNIA
     Dates: start: 20120501
  6. ESOMEPRAZOLE MAGNESIUM [Concomitant]
     Indication: PROPHYLAXIS
     Dates: start: 20120403
  7. CARBAMAZEPINE [Concomitant]
  8. MEROPENEM [Concomitant]
     Indication: NEUTROPENIA
     Dates: start: 20120503
  9. LEVOFLOXACIN [Concomitant]
     Indication: PYREXIA
     Dates: start: 20120408, end: 20120418
  10. RABEPRAZOLE SODIUM [Concomitant]
  11. VANCOMYCIN [Concomitant]
     Indication: NEUTROPENIA
     Dates: start: 20120506, end: 20120507
  12. LEVETIRACETAM [Concomitant]
     Dates: start: 20120330
  13. ACENOCOUMAROL [Concomitant]
     Dates: start: 20120403, end: 20120409
  14. ACETAMINOPHEN [Concomitant]
     Indication: MALAISE
     Dates: start: 20120503
  15. FLUCONAZOLE [Concomitant]
     Indication: NEUTROPENIA
     Dates: start: 20120507, end: 20120510
  16. LACTULOSE [Concomitant]
     Indication: CONSTIPATION
     Dates: start: 20120501
  17. LACOSAMIDE [Concomitant]
  18. ATORVASTATIN CALCIUM [Concomitant]
  19. FILGRASTIM [Concomitant]
     Indication: NEUTROPENIA
     Dates: start: 20120502, end: 20120503

REACTIONS (3)
  - ATRIAL FIBRILLATION [None]
  - LYMPHOMA [None]
  - PULMONARY EMBOLISM [None]
